FAERS Safety Report 25861388 (Version 3)
Quarter: 2025Q4

REPORT INFORMATION
  Report Type: Report from Study
  Country: EU (occurrence: EU)
  Receive Date: 20250929
  Receipt Date: 20251230
  Transmission Date: 20260118
  Serious: Yes (Hospitalization)
  Sender: ABBVIE
  Company Number: EU-ABBVIE-6449063

PATIENT
  Age: 72 Year
  Sex: Female

DRUGS (6)
  1. FOSCARBIDOPA\FOSLEVODOPA [Suspect]
     Active Substance: FOSCARBIDOPA\FOSLEVODOPA
     Indication: Parkinson^s disease
     Dosage: (SD: 0.6 ML), CRN: 0.18 ML/H, CR: 0.20 ML/H, CRH: 0.22 ML/H, ED: 0.30 ML
     Route: 058
     Dates: start: 20250903, end: 20250903
  2. FOSCARBIDOPA\FOSLEVODOPA [Suspect]
     Active Substance: FOSCARBIDOPA\FOSLEVODOPA
     Dosage: (SD: 0.6 ML), CRN: 0.16 ML/H, CR: 0.18 ML/H, CRH: 0.20 ML/H, ED: 0.30 ML.?DOSE REDUCED
     Route: 058
     Dates: start: 20250903, end: 20250903
  3. FOSCARBIDOPA\FOSLEVODOPA [Suspect]
     Active Substance: FOSCARBIDOPA\FOSLEVODOPA
     Dosage: (SD: 0.6 ML), CRN: 0.20 ML/H, CR: 0.22 ML/H, CRH: 0.24 ML/H, ED: 0.30 ML
     Route: 058
     Dates: start: 20250904, end: 20250904
  4. FOSCARBIDOPA\FOSLEVODOPA [Suspect]
     Active Substance: FOSCARBIDOPA\FOSLEVODOPA
     Dosage: SD: 0.60 ML, CRL: 0.22 ML/H, CR: 0.24 ML/H, CRH: 0.26 ML/H, ED: 0.30 ML
     Route: 058
     Dates: start: 20250905, end: 2025
  5. FOSCARBIDOPA\FOSLEVODOPA [Suspect]
     Active Substance: FOSCARBIDOPA\FOSLEVODOPA
     Dosage: CRN 0.24 ML/H, CR 0.26 ML/H, CRH 0,28 ML/H, ED 0.30 ML
     Route: 058
     Dates: start: 2025, end: 2025
  6. FOSCARBIDOPA\FOSLEVODOPA [Suspect]
     Active Substance: FOSCARBIDOPA\FOSLEVODOPA
     Dosage: CRN 0.26ML/H, CR 0.28ML/H, CRH 0.30ML/H, ED 0.30ML
     Route: 058
     Dates: start: 2025

REACTIONS (6)
  - Dizziness [Recovering/Resolving]
  - Hyperkinesia [Recovering/Resolving]
  - Musculoskeletal stiffness [Unknown]
  - Haematoma [Recovering/Resolving]
  - Hypokinesia [Recovered/Resolved]
  - Fall [Recovering/Resolving]

NARRATIVE: CASE EVENT DATE: 20250901
